FAERS Safety Report 15844284 (Version 2)
Quarter: 2019Q1

REPORT INFORMATION
  Report Type: Spontaneous
  Country: GB (occurrence: GB)
  Receive Date: 20190118
  Receipt Date: 20190122
  Transmission Date: 20190417
  Serious: Yes (Hospitalization, Other)
  Sender: FDA-Public Use
  Company Number: GB-PFIZER INC-2019019224

PATIENT
  Age: 32 Year
  Sex: Male

DRUGS (1)
  1. SPIRONOLACTONE. [Suspect]
     Active Substance: SPIRONOLACTONE
     Indication: HYPERTENSION
     Dosage: UNK

REACTIONS (5)
  - Drug intolerance [Unknown]
  - Lethargy [Unknown]
  - Dizziness [Unknown]
  - Orthostatic hypotension [Unknown]
  - Loss of consciousness [Unknown]
